FAERS Safety Report 10087277 (Version 1)
Quarter: 2014Q2

REPORT INFORMATION
  Report Type: Spontaneous
  Country: US (occurrence: US)
  Receive Date: 20140418
  Receipt Date: 20140418
  Transmission Date: 20141212
  Serious: No
  Sender: FDA-Public Use
  Company Number: US-B.I. PHARMACEUTICALS,INC./RIDGEFIELD-2014-BI-17123BP

PATIENT
  Age: 55 Year
  Sex: Female
  Weight: 85 kg

DRUGS (14)
  1. COMBIVENT [Suspect]
     Indication: ASTHMA
     Dosage: 2 MG
     Route: 065
     Dates: start: 20130923, end: 20131020
  2. HUMIRA [Suspect]
     Indication: RHEUMATOID ARTHRITIS
     Dosage: 40 MG
     Route: 058
     Dates: start: 201109, end: 201201
  3. HUMIRA [Suspect]
     Dosage: 40 MG
     Route: 058
     Dates: start: 201203, end: 20130908
  4. HUMIRA [Suspect]
     Dosage: 40 MG
     Route: 058
     Dates: start: 20131020
  5. ALLEGRA (FEXOFENADINE HYDROCHLORIDE) [Concomitant]
     Indication: ASTHMA
     Route: 065
  6. ACIDOPHILUS(LACTOBACILLUS ACIDOPHILUS) [Concomitant]
     Indication: PRODUCT USED FOR UNKNOWN INDICATION
     Dosage: 1 ANZ
     Route: 065
  7. OMEPRAZOLE(OMEPRAZOLE) [Concomitant]
     Indication: GASTRIC DISORDER
     Dosage: 20 MG
     Route: 065
  8. LISINOPRIL (LISINOPRIL) [Concomitant]
     Indication: HYPERTENSION
     Dosage: DAILY DOSE: 10-12.5 MG DAILY
     Route: 065
  9. CYMBALTA [Concomitant]
     Indication: DEPRESSION
     Dosage: 60 MG
     Route: 065
  10. CYMBALTA [Concomitant]
     Indication: RHEUMATOID ARTHRITIS
  11. VITAMIN D3 (COLECALCIFEROL) [Concomitant]
     Indication: VITAMIN D DECREASED
     Dosage: 2000 U
     Route: 065
  12. ZOLPIDEM TARTRATE (ZOLPIDEM TARTRATE) [Concomitant]
     Indication: SLEEP DISORDER
     Dosage: 5 MG
     Route: 065
  13. CLARINEX (DESLORATADINE) [Concomitant]
     Indication: SEASONAL ALLERGY
     Dosage: 5 MG
     Route: 065
  14. POTASSIUM (POTASSIUM) [Concomitant]
     Indication: PRODUCT USED FOR UNKNOWN INDICATION
     Dosage: 198 MG
     Route: 065

REACTIONS (13)
  - Influenza [Recovered/Resolved]
  - Herpes zoster [Recovered/Resolved]
  - Asthma [Recovered/Resolved]
  - Sinusitis [Unknown]
  - Headache [Unknown]
  - Eye pain [Unknown]
  - Asthma [Unknown]
  - Muscle spasms [Unknown]
  - Arthralgia [Unknown]
  - Cough [Unknown]
  - Night sweats [Unknown]
  - Hot flush [Unknown]
  - Insomnia [Unknown]
